FAERS Safety Report 18747700 (Version 1)
Quarter: 2021Q1

REPORT INFORMATION
  Report Type: Spontaneous
  Country: CN (occurrence: CN)
  Receive Date: 20210115
  Receipt Date: 20210115
  Transmission Date: 20210419
  Serious: Yes (Hospitalization, Other)
  Sender: FDA-Public Use
  Company Number: CN-ASTRAZENECA-2021A004859

PATIENT
  Age: 24989 Day
  Sex: Female
  Weight: 60 kg

DRUGS (1)
  1. LYNPARZA [Suspect]
     Active Substance: OLAPARIB
     Indication: GALLBLADDER CANCER
     Route: 048
     Dates: start: 20201209, end: 20201214

REACTIONS (2)
  - Thrombocytopenia [Recovering/Resolving]
  - Thrombocytopenic purpura [Unknown]

NARRATIVE: CASE EVENT DATE: 20201214
